FAERS Safety Report 8417933-1 (Version None)
Quarter: 2012Q2

REPORT INFORMATION
  Report Type: 
  Country: None (occurrence: None)
  Receive Date: 20120601
  Receipt Date: 20120601
  Transmission Date: 20120825
  Serious: Yes (Disabling)
  Sender: FDA-Public Use
  Company Number: None

PATIENT
  Age: 76 Year
  Sex: Male
  Weight: 102.0593 kg

DRUGS (1)
  1. AZITHROMYCIN [Suspect]
     Indication: SINUSITIS
     Dosage: 6 PILLS 2 - 1ST DAY, 1 PER DAY X 4 ONCE PER DAY ORAL
     Route: 048
     Dates: start: 20120414, end: 20120418

REACTIONS (3)
  - DEAFNESS [None]
  - TINNITUS [None]
  - EAR DISCOMFORT [None]
